FAERS Safety Report 19475578 (Version 1)
Quarter: 2021Q2

REPORT INFORMATION
  Report Type: Spontaneous
  Country: FR (occurrence: FR)
  Receive Date: 20210630
  Receipt Date: 20210630
  Transmission Date: 20210717
  Serious: Yes (Hospitalization, Congenital Anomaly, Other)
  Sender: FDA-Public Use
  Company Number: FR-ABBVIE-21K-056-3964916-00

PATIENT
  Sex: Female

DRUGS (1)
  1. DEPAKINE CHRONO [Suspect]
     Active Substance: VALPROATE SODIUM
     Indication: MATERNAL EXPOSURE TIMING UNSPECIFIED
     Route: 064

REACTIONS (15)
  - Ear disorder [Unknown]
  - Ear infection [Unknown]
  - Nasopharyngitis [Unknown]
  - Stridor [Unknown]
  - Disturbance in attention [Unknown]
  - Oropharyngeal discomfort [Unknown]
  - Cardiac disorder [Unknown]
  - Learning disability [Unknown]
  - Cardiac murmur [Unknown]
  - Foetal exposure during pregnancy [Unknown]
  - Behaviour disorder [Unknown]
  - Pyelonephritis [Unknown]
  - Nasal discomfort [Unknown]
  - Visual impairment [Unknown]
  - Personal relationship issue [Unknown]

NARRATIVE: CASE EVENT DATE: 19961209
